FAERS Safety Report 23718278 (Version 2)
Quarter: 2024Q3

REPORT INFORMATION
  Report Type: Spontaneous
  Country: JP (occurrence: JP)
  Receive Date: 20240408
  Receipt Date: 20240801
  Transmission Date: 20241017
  Serious: Yes (Death, Hospitalization)
  Sender: ROCHE
  Company Number: JP-CHUGAI-2024010704

PATIENT
  Age: 81 Year
  Sex: Female
  Weight: 54.1 kg

DRUGS (28)
  1. ACTEMRA [Suspect]
     Active Substance: TOCILIZUMAB
     Indication: Still^s disease
     Dosage: 400 MILLIGRAM, SINGLE
     Route: 041
     Dates: start: 20150702, end: 20150702
  2. ACTEMRA [Suspect]
     Active Substance: TOCILIZUMAB
     Dosage: 400 MILLIGRAM
     Route: 041
     Dates: start: 20240105
  3. ACTEMRA [Suspect]
     Active Substance: TOCILIZUMAB
     Route: 058
     Dates: start: 20150724, end: 20231221
  4. SOLU-MEDROL [Suspect]
     Active Substance: METHYLPREDNISOLONE SODIUM SUCCINATE
     Indication: Product used for unknown indication
     Dosage: 1000 MILLIGRAM, QD
     Route: 042
     Dates: end: 20240104
  5. PREDNISOLONE [Suspect]
     Active Substance: PREDNISOLONE
     Indication: Still^s disease
     Route: 048
  6. PREDNISOLONE [Suspect]
     Active Substance: PREDNISOLONE
     Route: 048
     Dates: end: 20240101
  7. ESOMEPRAZOLE MAGNESIUM [Concomitant]
     Active Substance: ESOMEPRAZOLE MAGNESIUM
     Dosage: 20 MILLIGRAM, QD
     Route: 050
  8. ATORVASTATIN CALCIUM TRIHYDRATE [Concomitant]
     Active Substance: ATORVASTATIN CALCIUM TRIHYDRATE
     Dosage: 5 MILLIGRAM, QD
     Route: 050
  9. ATORVASTATIN CALCIUM TRIHYDRATE [Concomitant]
     Active Substance: ATORVASTATIN CALCIUM TRIHYDRATE
     Dosage: 5 MILLIGRAM, QD
  10. CALCIUM CARBONATE\CHOLECALCIFEROL\MAGNESIUM CARBONATE [Concomitant]
     Active Substance: CALCIUM CARBONATE\CHOLECALCIFEROL\MAGNESIUM CARBONATE
     Dosage: 1 TAB, QD
     Route: 050
  11. CALCIUM CARBONATE\CHOLECALCIFEROL\MAGNESIUM CARBONATE [Concomitant]
     Active Substance: CALCIUM CARBONATE\CHOLECALCIFEROL\MAGNESIUM CARBONATE
     Dosage: 1 TAB, QD
  12. PREDNISOLONE [Concomitant]
     Active Substance: PREDNISOLONE
     Indication: Still^s disease
     Dosage: 40 MILLIGRAM, QD
     Dates: end: 20240101
  13. PREDNISOLONE [Concomitant]
     Active Substance: PREDNISOLONE
     Dosage: 40 MILLIGRAM, QD
     Dates: start: 20240105
  14. PROGRAF [Concomitant]
     Active Substance: TACROLIMUS
     Dosage: 1 MILLIGRAM, QD
     Route: 050
  15. PROGRAF [Concomitant]
     Active Substance: TACROLIMUS
     Dosage: 3 MILLIGRAM
     Route: 050
  16. PROGRAF [Concomitant]
     Active Substance: TACROLIMUS
     Dosage: 1 MILLIGRAM, QD
  17. PROGRAF [Concomitant]
     Active Substance: TACROLIMUS
     Dosage: 3 MILLIGRAM
  18. ESOMEPRAZOLE [Concomitant]
     Active Substance: ESOMEPRAZOLE
     Dosage: 20 MILLIGRAM, QD
  19. TELMISARTAN [Concomitant]
     Active Substance: TELMISARTAN
     Dosage: 40 MILLIGRAM, QD
     Route: 050
  20. TELMISARTAN [Concomitant]
     Active Substance: TELMISARTAN
     Dosage: 40 MILLIGRAM, QD
  21. URAPIDIL [Concomitant]
     Active Substance: URAPIDIL
     Dosage: 45 MILLIGRAM, BID
     Route: 050
  22. URAPIDIL [Concomitant]
     Active Substance: URAPIDIL
     Dosage: 45 MILLIGRAM, BID
  23. ESZOPICLONE [Concomitant]
     Active Substance: ESZOPICLONE
     Dosage: 2 MILLIGRAM, QD
     Route: 050
  24. ESZOPICLONE [Concomitant]
     Active Substance: ESZOPICLONE
     Dosage: 2 MILLIGRAM, QD
  25. ACETAMINOPHEN\TRAMADOL HYDROCHLORIDE [Concomitant]
     Active Substance: ACETAMINOPHEN\TRAMADOL HYDROCHLORIDE
     Dosage: 4 TAB, BID
     Route: 050
  26. ACETAMINOPHEN\TRAMADOL HYDROCHLORIDE [Concomitant]
     Active Substance: ACETAMINOPHEN\TRAMADOL HYDROCHLORIDE
     Dosage: 4 TAB, BID
  27. MAGNESIUM OXIDE [Concomitant]
     Active Substance: MAGNESIUM OXIDE
     Dosage: 330 MILLIGRAM, TID
     Route: 050
  28. MAGNESIUM OXIDE [Concomitant]
     Active Substance: MAGNESIUM OXIDE
     Dosage: 330 MILLIGRAM, TID

REACTIONS (6)
  - Still^s disease [Unknown]
  - Drug eruption [Fatal]
  - Pulmonary oedema [Fatal]
  - Pneumonia [Fatal]
  - Off label use [Unknown]
  - Intestinal perforation [Recovering/Resolving]

NARRATIVE: CASE EVENT DATE: 20231201
